FAERS Safety Report 17030834 (Version 2)
Quarter: 2020Q1

REPORT INFORMATION
  Report Type: Report from Study
  Country: BR (occurrence: BR)
  Receive Date: 20191114
  Receipt Date: 20200206
  Transmission Date: 20200409
  Serious: Yes (Hospitalization, Other)
  Sender: FDA-Public Use
  Company Number: PHHY2019BR215121

PATIENT
  Age: 32 Year
  Sex: Female

DRUGS (1)
  1. GILENYA [Suspect]
     Active Substance: FINGOLIMOD HYDROCHLORIDE
     Indication: MULTIPLE SCLEROSIS
     Dosage: UNK
     Route: 065
     Dates: start: 20190423

REACTIONS (9)
  - Multiple sclerosis relapse [Recovered/Resolved with Sequelae]
  - Malaise [Unknown]
  - Optic neuritis [Not Recovered/Not Resolved]
  - Urinary incontinence [Recovering/Resolving]
  - Optic nerve injury [Not Recovered/Not Resolved]
  - Gait disturbance [Recovered/Resolved]
  - Multiple sclerosis [Not Recovered/Not Resolved]
  - Anal incontinence [Recovering/Resolving]
  - Blood test abnormal [Unknown]

NARRATIVE: CASE EVENT DATE: 201904
